FAERS Safety Report 13549838 (Version 2)
Quarter: 2017Q2

REPORT INFORMATION
  Report Type: Spontaneous
  Country: US (occurrence: US)
  Receive Date: 20170516
  Receipt Date: 20170518
  Transmission Date: 20170830
  Serious: Yes (Other)
  Sender: FDA-Public Use
  Company Number: US-DRREDDYS-USA/USA/17/0090607

PATIENT
  Age: 66 Year
  Sex: Female

DRUGS (1)
  1. METOPROLOL SUCCINATE. [Suspect]
     Active Substance: METOPROLOL SUCCINATE
     Indication: ATRIAL FIBRILLATION
     Route: 065

REACTIONS (4)
  - Koebner phenomenon [Recovering/Resolving]
  - Hypersensitivity [Recovering/Resolving]
  - Psoriasis [Recovering/Resolving]
  - Dermatitis exfoliative [Recovering/Resolving]
